FAERS Safety Report 4723392-2 (Version None)
Quarter: 2005Q3

REPORT INFORMATION
  Report Type: 
  Country: None (occurrence: None)
  Receive Date: 20050725
  Receipt Date: 20050623
  Transmission Date: 20060218
  Serious: Yes (Life-Threatening, Other)
  Sender: FDA-Public Use
  Company Number: US-BRISTOL-MYERS SQUIBB COMPANY-13013925

PATIENT
  Age: 68 Year
  Sex: Male

DRUGS (3)
  1. ERBITUX [Suspect]
     Indication: COLORECTAL CANCER METASTATIC
     Dosage: THIS WAS INITIAL DOSE OF CETUXIMAB.  RECEIVED 20-30 CC OF CETUXIMAB IV.
     Route: 042
     Dates: start: 20050616, end: 20050616
  2. BENADRYL [Concomitant]
     Indication: PREMEDICATION
     Route: 042
     Dates: start: 20050616, end: 20050616
  3. TYLENOL [Concomitant]
     Indication: PREMEDICATION
     Dates: start: 20050616, end: 20050616

REACTIONS (8)
  - BLOOD PRESSURE IMMEASURABLE [None]
  - CARDIO-RESPIRATORY ARREST [None]
  - CHEST PAIN [None]
  - DYSGEUSIA [None]
  - FLUSHING [None]
  - HYPERHIDROSIS [None]
  - HYPOTENSION [None]
  - PULSE ABSENT [None]
